FAERS Safety Report 19175988 (Version 1)
Quarter: 2021Q2

REPORT INFORMATION
  Report Type: Spontaneous
  Country: CN (occurrence: CN)
  Receive Date: 20210423
  Receipt Date: 20210423
  Transmission Date: 20210717
  Serious: Yes (Other)
  Sender: FDA-Public Use
  Company Number: CN-FERRINGPH-2021FE02440

PATIENT

DRUGS (1)
  1. PROPESS [Suspect]
     Active Substance: DINOPROSTONE
     Indication: LABOUR INDUCTION
     Dosage: 10 MG, ONCE/SINGLE
     Route: 064
     Dates: start: 20210325, end: 20210325

REACTIONS (2)
  - Foetal heart rate deceleration abnormality [Unknown]
  - Baseline foetal heart rate variability disorder [Unknown]

NARRATIVE: CASE EVENT DATE: 20210325
